FAERS Safety Report 9500630 (Version 2)
Quarter: 2013Q3

REPORT INFORMATION
  Report Type: Spontaneous
  Country: US (occurrence: US)
  Receive Date: 20130905
  Receipt Date: 20130911
  Transmission Date: 20140515
  Serious: Yes (Other)
  Sender: FDA-Public Use
  Company Number: US-PFIZER INC-2013254482

PATIENT
  Age: 68 Year
  Sex: Female
  Weight: 56.69 kg

DRUGS (7)
  1. NEURONTIN [Suspect]
     Indication: NERVE INJURY
     Dosage: 300 MG, 3X/DAY
     Dates: start: 200510
  2. NEURONTIN [Suspect]
     Dosage: 600 MG, UNK
  3. NEURONTIN [Suspect]
     Dosage: 800 MG, DAILY
  4. NEURONTIN [Suspect]
     Dosage: UNK
  5. IMURAN [Concomitant]
     Indication: CROHN^S DISEASE
     Dosage: 100 MG, DAILY
  6. PROTONIX [Concomitant]
     Indication: FLATULENCE
     Dosage: 40 MG, DAILY
  7. PROTONIX [Concomitant]
     Indication: REGURGITATION

REACTIONS (3)
  - Feeling of despair [Unknown]
  - Panic attack [Unknown]
  - Anxiety [Unknown]
